FAERS Safety Report 20565162 (Version 1)
Quarter: 2022Q1

REPORT INFORMATION
  Report Type: Spontaneous
  Country: US (occurrence: US)
  Receive Date: 20220308
  Receipt Date: 20220308
  Transmission Date: 20220423
  Serious: Yes (Hospitalization)
  Sender: FDA-Public Use
  Company Number: US-AVET LIFESCIENCES LTD-2022-AVET-000044

PATIENT
  Age: 62 Year
  Sex: Female

DRUGS (9)
  1. ZOLEDRONIC ACID [Suspect]
     Active Substance: ZOLEDRONIC ACID
     Indication: Metastases to bone
     Dosage: 4 MILLIGRAM, RAPIDITY OF ZA INFUSION WAS 30 MINUTES
     Route: 042
  2. PALBOCICLIB [Concomitant]
     Active Substance: PALBOCICLIB
     Dosage: ONCOLOGICAL TREATMENT
  3. LETROZOLE [Concomitant]
     Active Substance: LETROZOLE
     Dosage: ONCOLOGICAL TREATMENT
  4. AMLODIPINE [Concomitant]
     Active Substance: AMLODIPINE BESYLATE
  5. ATORVASTATIN [Concomitant]
     Active Substance: ATORVASTATIN
  6. GLIMEPIRIDE [Concomitant]
     Active Substance: GLIMEPIRIDE
  7. LEVOTHYROXINE [Concomitant]
     Active Substance: LEVOTHYROXINE
  8. LOSARTAN [Concomitant]
     Active Substance: LOSARTAN
  9. PROCHLORPERAZINE [Concomitant]
     Active Substance: PROCHLORPERAZINE

REACTIONS (3)
  - Fanconi syndrome [Recovering/Resolving]
  - Osteonecrosis of jaw [Unknown]
  - Acute kidney injury [Unknown]
